FAERS Safety Report 5227067-5 (Version None)
Quarter: 2007Q1

REPORT INFORMATION
  Report Type: 
  Country: None (occurrence: None)
  Receive Date: 20070201
  Receipt Date: 20070201
  Transmission Date: 20070707
  Serious: Yes (Other)
  Sender: FDA-Public Use
  Company Number: None

PATIENT
  Age: 86 Year
  Sex: Male

DRUGS (1)
  1. TYLENOL (CAPLET) [Suspect]
     Dosage: 3 TABLETS
     Dates: start: 20060728

REACTIONS (4)
  - ASTHENIA [None]
  - BLINDNESS [None]
  - DEAFNESS [None]
  - MEMORY IMPAIRMENT [None]
